FAERS Safety Report 14198049 (Version 1)
Quarter: 2017Q4

REPORT INFORMATION
  Report Type: Spontaneous
  Country: US (occurrence: None)
  Receive Date: 20171116
  Receipt Date: 20171116
  Transmission Date: 20180321
  Serious: Yes (Life-Threatening, Hospitalization)
  Sender: FDA-Public Use
  Company Number: None

PATIENT
  Age: 47 Year
  Sex: Female
  Weight: 81.3 kg

DRUGS (1)
  1. ALBUMIN [Suspect]
     Active Substance: ALBUMIN HUMAN
     Route: 042
     Dates: start: 20171102, end: 20171102

REACTIONS (3)
  - Product quality issue [None]
  - Anaphylactoid reaction [None]
  - Hypotension [None]

NARRATIVE: CASE EVENT DATE: 20171102
